FAERS Safety Report 8018469-2 (Version None)
Quarter: 2011Q4

REPORT INFORMATION
  Report Type: 
  Country: None (occurrence: None)
  Receive Date: 20111227
  Receipt Date: 20111218
  Transmission Date: 20120403
  Serious: Yes (Death, Hospitalization)
  Sender: FDA-Public Use
  Company Number: 2011ST000546

PATIENT
  Age: 74 Year
  Sex: Female
  Weight: 70 kg

DRUGS (10)
  1. ABELCET [Suspect]
     Indication: SYSTEMIC MYCOSIS
     Dosage: 335 MG, QD, IV
     Route: 042
     Dates: start: 19961203, end: 19961210
  2. GENTAMICIN [Concomitant]
  3. VANCOMYCIN [Concomitant]
  4. CYTARABINE [Concomitant]
  5. MITOXANTRONE [Concomitant]
  6. ETOPOSIDE [Concomitant]
  7. AMPHOTERICIN B [Suspect]
     Indication: SYSTEMIC MYCOSIS
     Dosage: 40 MG, QD, IV
     Route: 042
     Dates: start: 19961128, end: 19961201
  8. CIPROFLOXACIN [Concomitant]
  9. IMMUNOGLOBULIN HUMAN NORMAL [Concomitant]
  10. AZTREONAM [Concomitant]

REACTIONS (4)
  - BLOOD CREATININE INCREASED [None]
  - LABORATORY TEST INTERFERENCE [None]
  - RENAL IMPAIRMENT [None]
  - BLOOD BILIRUBIN INCREASED [None]
